FAERS Safety Report 9767594 (Version 1)
Quarter: 2013Q4

REPORT INFORMATION
  Report Type: Spontaneous
  Country: US (occurrence: None)
  Receive Date: 20131213
  Receipt Date: 20131213
  Transmission Date: 20140711
  Serious: Yes (Other)
  Sender: FDA-Public Use
  Company Number: 2013SA028029

PATIENT
  Sex: 0

DRUGS (1)
  1. CAPZASIN P CREME/ UNKNOWN/ UNKNOWN [Suspect]
     Indication: PRODUCT USED FOR UNKNOWN INDICATION
     Dosage: TOPICAL
     Dates: start: 200811

REACTIONS (4)
  - Pain [None]
  - Blister [None]
  - Application site burn [None]
  - Chemical injury [None]
